FAERS Safety Report 11589677 (Version 2)
Quarter: 2015Q4

REPORT INFORMATION
  Report Type: Spontaneous
  Country: US (occurrence: US)
  Receive Date: 20151002
  Receipt Date: 20151113
  Transmission Date: 20160304
  Serious: Yes (Other)
  Sender: FDA-Public Use
  Company Number: US-JNJFOC-20150912346

PATIENT
  Age: 20 Year
  Sex: Male

DRUGS (9)
  1. RISPERIDONE. [Suspect]
     Active Substance: RISPERIDONE
     Indication: SCHIZOAFFECTIVE DISORDER
     Dosage: 3MG TO 4 MG
     Route: 065
     Dates: start: 20101227, end: 20150122
  2. RISPERDAL [Suspect]
     Active Substance: RISPERIDONE
     Indication: SCHIZOAFFECTIVE DISORDER
     Dosage: VARYING DOSES OF 2MG TO 3MG
     Route: 048
     Dates: start: 20041103, end: 20041201
  3. RISPERDAL [Suspect]
     Active Substance: RISPERIDONE
     Indication: SCHIZOAFFECTIVE DISORDER
     Route: 048
  4. RISPERDAL [Suspect]
     Active Substance: RISPERIDONE
     Indication: SCHIZOAFFECTIVE DISORDER
     Route: 048
     Dates: start: 20070131, end: 20130821
  5. RISPERDAL [Suspect]
     Active Substance: RISPERIDONE
     Indication: SCHIZOAFFECTIVE DISORDER
     Route: 048
     Dates: start: 20050126, end: 20060815
  6. RISPERDAL [Suspect]
     Active Substance: RISPERIDONE
     Indication: SCHIZOAFFECTIVE DISORDER
     Route: 048
     Dates: start: 20130712, end: 20141111
  7. RISPERDAL [Suspect]
     Active Substance: RISPERIDONE
     Indication: SCHIZOAFFECTIVE DISORDER
     Dosage: 1MG
     Route: 048
     Dates: start: 1995, end: 2004
  8. RISPERIDONE. [Suspect]
     Active Substance: RISPERIDONE
     Indication: SCHIZOAFFECTIVE DISORDER
     Route: 065
  9. RISPERIDONE. [Suspect]
     Active Substance: RISPERIDONE
     Indication: SCHIZOAFFECTIVE DISORDER
     Route: 065
     Dates: start: 20141209

REACTIONS (3)
  - Abnormal weight gain [Unknown]
  - Hyperprolactinaemia [Unknown]
  - Gynaecomastia [Unknown]

NARRATIVE: CASE EVENT DATE: 20041103
